FAERS Safety Report 6633403-5 (Version None)
Quarter: 2010Q1

REPORT INFORMATION
  Report Type: 
  Country: None (occurrence: None)
  Receive Date: 20100312
  Receipt Date: 20100305
  Transmission Date: 20100710
  Serious: Yes (Other)
  Sender: FDA-Public Use
  Company Number: GB-GILEAD-2010-0027514

PATIENT
  Age: 39 Year
  Sex: Female

DRUGS (3)
  1. TRUVADA [Suspect]
     Indication: HIV INFECTION
     Route: 048
  2. DARUNAVIR [Concomitant]
     Indication: HIV INFECTION
     Route: 048
  3. RITONAVIR [Concomitant]
     Indication: HIV INFECTION

REACTIONS (2)
  - ALPHA 1 FOETOPROTEIN ABNORMAL [None]
  - PREGNANCY [None]
